FAERS Safety Report 21335068 (Version 1)
Quarter: 2022Q3

REPORT INFORMATION
  Report Type: Spontaneous
  Country: US (occurrence: None)
  Receive Date: 20220914
  Receipt Date: 20220914
  Transmission Date: 20221026
  Serious: Yes (Death)
  Sender: FDA-Public Use
  Company Number: None

PATIENT
  Age: 89 Year
  Sex: Male

DRUGS (11)
  1. ABIRATERONE [Suspect]
     Active Substance: ABIRATERONE
     Indication: Metastases to bone
     Dosage: FREQUENCY : DAILY;?
     Route: 048
     Dates: start: 202207, end: 20220914
  2. ALLOPURINOL [Concomitant]
     Active Substance: ALLOPURINOL
  3. ARTIFICAL TEARS [Concomitant]
  4. CALCIUM CARBONATE [Concomitant]
  5. CASIDEX GABAPENTIN [Concomitant]
  6. HYDROCHLOROTHIAZIDE [Concomitant]
  7. MULTIVITAMIN [Concomitant]
  8. OMEPRAZOLE [Concomitant]
  9. TAMSULOSIN [Concomitant]
  10. VOLTAREN [Concomitant]
  11. XGEVA [Concomitant]

REACTIONS (1)
  - Death [None]
